FAERS Safety Report 17851752 (Version 11)
Quarter: 2020Q4

REPORT INFORMATION
  Report Type: Spontaneous
  Country: US (occurrence: US)
  Receive Date: 20200602
  Receipt Date: 20201130
  Transmission Date: 20210113
  Serious: Yes (Congenital Anomaly, Other)
  Sender: FDA-Public Use
  Company Number: NVSC2020US152449

PATIENT
  Sex: Female

DRUGS (1)
  1. ZOFRAN [Suspect]
     Active Substance: ONDANSETRON HYDROCHLORIDE
     Indication: FOETAL EXPOSURE DURING PREGNANCY
     Dosage: MOTHER DOSE: UNK, PRN
     Route: 064

REACTIONS (94)
  - Otospondylomegaepiphyseal dysplasia [Unknown]
  - Staphylococcal infection [Unknown]
  - Anger [Unknown]
  - Arthropod bite [Unknown]
  - Dental caries [Unknown]
  - Constipation [Unknown]
  - Eustachian tube dysfunction [Unknown]
  - Cough [Unknown]
  - Rash [Unknown]
  - Skin disorder [Unknown]
  - Otorrhoea [Unknown]
  - Hypothyroidism [Unknown]
  - Retention cyst [Unknown]
  - Effusion [Unknown]
  - Oropharyngeal pain [Unknown]
  - Lymphadenopathy [Unknown]
  - Rhinorrhoea [Unknown]
  - Myalgia [Unknown]
  - Chills [Unknown]
  - Decreased appetite [Unknown]
  - Panic attack [Unknown]
  - Acne [Unknown]
  - Skin abrasion [Unknown]
  - Mutism [Unknown]
  - Foetal exposure during pregnancy [Unknown]
  - Sleep disorder [Unknown]
  - Pain [Unknown]
  - Encopresis [Unknown]
  - Cardiac murmur [Unknown]
  - Dysphagia [Unknown]
  - Ear pain [Unknown]
  - Ocular hyperaemia [Unknown]
  - H1N1 influenza [Unknown]
  - Cleft palate [Unknown]
  - Suicide attempt [Unknown]
  - Autoimmune thyroiditis [Unknown]
  - Bipolar disorder [Unknown]
  - Attention deficit hyperactivity disorder [Unknown]
  - Depression [Unknown]
  - Thyroid disorder [Unknown]
  - Sinusitis [Unknown]
  - Dysplasia [Unknown]
  - Acidosis [Unknown]
  - Musculoskeletal stiffness [Unknown]
  - Upper respiratory tract infection [Unknown]
  - Feeding disorder [Unknown]
  - Rhinitis allergic [Unknown]
  - Dyspnoea [Unknown]
  - Asthma [Unknown]
  - Adjustment disorder [Unknown]
  - Delayed puberty [Unknown]
  - Depressed mood [Unknown]
  - Aggression [Unknown]
  - Failure to thrive [Unknown]
  - Otitis media chronic [Unknown]
  - Peritonsillar abscess [Unknown]
  - Injury [Unknown]
  - Pain in extremity [Unknown]
  - Auditory nerve disorder [Unknown]
  - Language disorder [Unknown]
  - Wheezing [Unknown]
  - Headache [Unknown]
  - Conjunctivitis [Unknown]
  - Amenorrhoea [Unknown]
  - Crying [Unknown]
  - Anhedonia [Unknown]
  - Deafness congenital [Unknown]
  - Deafness neurosensory [Unknown]
  - Anxiety [Unknown]
  - Infection [Unknown]
  - Viral infection [Unknown]
  - Pharyngitis [Unknown]
  - Influenza like illness [Unknown]
  - Malnutrition [Unknown]
  - Menstruation irregular [Unknown]
  - Asthenia [Unknown]
  - Seasonal allergy [Unknown]
  - Ear infection [Unknown]
  - Speech disorder [Unknown]
  - Chest pain [Unknown]
  - Fistula [Unknown]
  - Irritable bowel syndrome [Unknown]
  - Cerumen impaction [Unknown]
  - Pruritus [Unknown]
  - Irritability [Unknown]
  - Encephalopathy [Unknown]
  - Nasal septum deviation [Unknown]
  - Abdominal pain [Unknown]
  - Pyrexia [Unknown]
  - Macrognathia [Unknown]
  - Abnormal weight gain [Unknown]
  - Underweight [Unknown]
  - Dysmenorrhoea [Unknown]
  - Visual impairment [Unknown]
